FAERS Safety Report 16872776 (Version 1)
Quarter: 2019Q4

REPORT INFORMATION
  Report Type: Spontaneous
  Country: US (occurrence: US)
  Receive Date: 20191001
  Receipt Date: 20191001
  Transmission Date: 20200122
  Serious: Yes (Other)
  Sender: FDA-Public Use
  Company Number: None

PATIENT
  Age: 62 Year
  Sex: Female

DRUGS (9)
  1. CELEXIB [Concomitant]
  2. CEPHALEXIN. [Concomitant]
     Active Substance: CEPHALEXIN
  3. HYDROCO/APAP [Concomitant]
     Active Substance: ACETAMINOPHEN\HYDROCODONE
  4. METHOTREXATE. [Concomitant]
     Active Substance: METHOTREXATE
  5. SIMPONI [Suspect]
     Active Substance: GOLIMUMAB
     Indication: RHEUMATOID ARTHRITIS
     Dosage: ?          OTHER FREQUENCY:EVERY 30 DAYS;?
     Route: 058
     Dates: start: 20160226
  6. ONDANSETRON [Concomitant]
     Active Substance: ONDANSETRON
  7. METOPROL TAR [Concomitant]
  8. CIPRO [Concomitant]
     Active Substance: CIPROFLOXACIN HYDROCHLORIDE
  9. NITROFURANTIN [Concomitant]
     Active Substance: NITROFURANTOIN

REACTIONS (2)
  - Surgery [None]
  - Therapy cessation [None]
